FAERS Safety Report 10781354 (Version 1)
Quarter: 2015Q1

REPORT INFORMATION
  Report Type: Spontaneous
  Country: LT (occurrence: LT)
  Receive Date: 20150210
  Receipt Date: 20150210
  Transmission Date: 20150721
  Serious: Yes (Hospitalization)
  Sender: FDA-Public Use
  Company Number: LT-JNJFOC-20150121781

PATIENT
  Age: 45 Year
  Sex: Male

DRUGS (8)
  1. ESCITALOPRAM [Concomitant]
     Active Substance: ESCITALOPRAM OXALATE
     Indication: SCHIZOPHRENIA, PARANOID TYPE
     Route: 065
     Dates: start: 20131221, end: 20140729
  2. XEPLION [Suspect]
     Active Substance: PALIPERIDONE PALMITATE
     Indication: SCHIZOPHRENIA, PARANOID TYPE
     Route: 030
     Dates: start: 20140729
  3. XEPLION [Suspect]
     Active Substance: PALIPERIDONE PALMITATE
     Indication: SCHIZOPHRENIA, PARANOID TYPE
     Route: 030
     Dates: start: 2013, end: 20140729
  4. XEPLION [Suspect]
     Active Substance: PALIPERIDONE PALMITATE
     Indication: SCHIZOPHRENIA, PARANOID TYPE
     Route: 030
     Dates: start: 2013, end: 2013
  5. HALOPERIDOL. [Concomitant]
     Active Substance: HALOPERIDOL
     Indication: SCHIZOPHRENIA, PARANOID TYPE
     Route: 065
     Dates: start: 20130411, end: 20130507
  6. OLANZAPIN [Concomitant]
     Active Substance: OLANZAPINE
     Indication: SCHIZOPHRENIA, PARANOID TYPE
     Route: 065
     Dates: start: 20130411, end: 20130507
  7. ESCITALOPRAM [Concomitant]
     Active Substance: ESCITALOPRAM OXALATE
     Indication: ANTIDEPRESSANT THERAPY
     Route: 065
     Dates: start: 20131221, end: 20140729
  8. RISPERIDONE. [Concomitant]
     Active Substance: RISPERIDONE
     Indication: SCHIZOPHRENIA, PARANOID TYPE
     Route: 065
     Dates: start: 20130411, end: 20130507

REACTIONS (3)
  - Depressed mood [Recovered/Resolved]
  - Somnolence [Recovered/Resolved]
  - Mood altered [Recovered/Resolved]

NARRATIVE: CASE EVENT DATE: 201312
